FAERS Safety Report 11704800 (Version 1)
Quarter: 2015Q4

REPORT INFORMATION
  Report Type: Spontaneous
  Country: HR (occurrence: HR)
  Receive Date: 20151106
  Receipt Date: 20151106
  Transmission Date: 20160304
  Serious: Yes (Other)
  Sender: FDA-Public Use
  Company Number: HR-SA-2015SA173150

PATIENT
  Age: 54 Year
  Sex: Male
  Weight: 86 kg

DRUGS (8)
  1. VOLTAREN [Concomitant]
     Active Substance: DICLOFENAC SODIUM
     Indication: PSORIATIC ARTHROPATHY
     Dosage: 1-2 X100MG /DAY
     Route: 048
     Dates: start: 201403
  2. METHOTREXATE [Concomitant]
     Active Substance: METHOTREXATE
     Indication: PSORIATIC ARTHROPATHY
     Route: 048
     Dates: start: 201103
  3. DECORTIN [Concomitant]
     Active Substance: PREDNISONE
     Indication: PSORIATIC ARTHROPATHY
     Route: 048
     Dates: start: 201408
  4. CONTROLOC [Concomitant]
     Active Substance: PANTOPRAZOLE SODIUM
     Route: 048
     Dates: start: 201012
  5. NEBILET [Concomitant]
     Active Substance: NEBIVOLOL
     Indication: HYPERTENSION
     Route: 048
     Dates: start: 201203
  6. ARAVA [Suspect]
     Active Substance: LEFLUNOMIDE
     Indication: PSORIATIC ARTHROPATHY
     Route: 048
     Dates: start: 201508, end: 20150905
  7. FOLACIN [Concomitant]
     Active Substance: FOLIC ACID
     Route: 048
     Dates: start: 201103
  8. ZARACET [Concomitant]
     Indication: PSORIATIC ARTHROPATHY
     Dosage: 2-3 X1TBL/DAY
     Route: 048
     Dates: start: 201106

REACTIONS (9)
  - Arthralgia [Recovering/Resolving]
  - Fatigue [Recovering/Resolving]
  - Cheilitis [Recovering/Resolving]
  - Hypersensitivity vasculitis [Recovering/Resolving]
  - Liver injury [Recovering/Resolving]
  - Scab [Recovering/Resolving]
  - Rash maculo-papular [Recovering/Resolving]
  - Skin ulcer [Recovering/Resolving]
  - Joint stiffness [Recovering/Resolving]

NARRATIVE: CASE EVENT DATE: 201508
